FAERS Safety Report 18151405 (Version 2)
Quarter: 2020Q4

REPORT INFORMATION
  Report Type: Spontaneous
  Country: US (occurrence: US)
  Receive Date: 20200814
  Receipt Date: 20201030
  Transmission Date: 20210113
  Serious: Yes (Hospitalization)
  Sender: FDA-Public Use
  Company Number: US-JNJFOC-20200807583

PATIENT
  Age: 67 Year
  Sex: Female
  Weight: 79.9 kg

DRUGS (1)
  1. REMICADE [Suspect]
     Active Substance: INFLIXIMAB
     Indication: RHEUMATOID ARTHRITIS
     Route: 042
     Dates: start: 20200604, end: 20200604

REACTIONS (7)
  - Sepsis [Recovered/Resolved]
  - Neurosarcoidosis [Unknown]
  - Breast discomfort [Not Recovered/Not Resolved]
  - Urinary tract infection [Recovered/Resolved]
  - Muscle tightness [Recovered/Resolved]
  - Muscle atrophy [Unknown]
  - Infusion related reaction [Recovered/Resolved]

NARRATIVE: CASE EVENT DATE: 20200604
